FAERS Safety Report 9653155 (Version 1)
Quarter: 2013Q4

REPORT INFORMATION
  Report Type: Spontaneous
  Country: US (occurrence: US)
  Receive Date: 20131029
  Receipt Date: 20131029
  Transmission Date: 20140711
  Serious: Yes (Hospitalization)
  Sender: FDA-Public Use
  Company Number: US-JNJFOC-20131012571

PATIENT
  Age: 70 Year
  Sex: Female

DRUGS (19)
  1. INVOKANA [Suspect]
     Indication: TYPE 2 DIABETES MELLITUS
     Route: 048
  2. NORCO [Concomitant]
  3. ACYCLOVIR [Concomitant]
  4. ASPIRIN [Concomitant]
  5. ATENOLOL [Concomitant]
  6. VITAMIN D3 [Concomitant]
  7. VITAMIN B12 [Concomitant]
  8. LOMOTIL [Concomitant]
  9. NEURONTIN [Concomitant]
  10. TRAZODONE [Concomitant]
  11. SERTRALINE [Concomitant]
  12. SIMVASTATIN [Concomitant]
  13. LANTUS INSULIN [Concomitant]
  14. METFORMIN [Concomitant]
  15. REGLAN [Concomitant]
  16. OMEPRAZOLE [Concomitant]
  17. WELLBUTRIN [Concomitant]
  18. ALDACTONE [Concomitant]
  19. KLONOPIN [Concomitant]

REACTIONS (2)
  - Cardiac failure congestive [Unknown]
  - Pneumonia [Recovering/Resolving]
